FAERS Safety Report 7755159-5 (Version None)
Quarter: 2011Q3

REPORT INFORMATION
  Report Type: 
  Country: None (occurrence: None)
  Receive Date: 20110916
  Receipt Date: 20110914
  Transmission Date: 20111222
  Serious: No
  Sender: FDA-Public Use
  Company Number: US-PFIZER INC-2011217574

PATIENT
  Sex: Female
  Weight: 108.84 kg

DRUGS (1)
  1. CHANTIX [Suspect]
     Indication: SMOKING CESSATION THERAPY
     Dosage: 0.5 MG, 1X/DAY
     Route: 048
     Dates: start: 20110909, end: 20110913

REACTIONS (4)
  - MOOD ALTERED [None]
  - INSOMNIA [None]
  - NAUSEA [None]
  - MALAISE [None]
